FAERS Safety Report 16793930 (Version 1)
Quarter: 2019Q3

REPORT INFORMATION
  Report Type: Spontaneous
  Country: FR (occurrence: FR)
  Receive Date: 20190911
  Receipt Date: 20190911
  Transmission Date: 20191005
  Serious: Yes (Other)
  Sender: FDA-Public Use
  Company Number: FR-ENDO PHARMACEUTICALS INC-2019-107846

PATIENT
  Age: 41 Year
  Sex: Male

DRUGS (3)
  1. AVEED [Suspect]
     Active Substance: TESTOSTERONE UNDECANOATE
     Indication: ANDROGEN DEFICIENCY
     Dosage: 1 DF, EVERY 3 MONTHS
     Route: 065
     Dates: start: 2011
  2. AVEED [Suspect]
     Active Substance: TESTOSTERONE UNDECANOATE
     Dosage: UNK UNKNOWN, UNKNOWN
     Route: 065
     Dates: start: 20190814
  3. AVEED [Suspect]
     Active Substance: TESTOSTERONE UNDECANOATE
     Dosage: UNK UNKNOWN, 1 INJECTION EVERY 2 MONTHS TO 2 AND A HALF MONTHS
     Route: 065
     Dates: start: 2019

REACTIONS (15)
  - Groin pain [Unknown]
  - Male sexual dysfunction [Unknown]
  - Muscle atrophy [Unknown]
  - Prostatomegaly [Unknown]
  - Urethral stenosis [Unknown]
  - Oedema peripheral [Unknown]
  - Semen viscosity decreased [Unknown]
  - Dysuria [Unknown]
  - Libido disorder [Unknown]
  - Prostatic disorder [Unknown]
  - Product complaint [Unknown]
  - Ejaculation disorder [Unknown]
  - Muscle rigidity [Unknown]
  - Asthenia [Unknown]
  - Therapeutic product effect incomplete [Unknown]

NARRATIVE: CASE EVENT DATE: 201908
